FAERS Safety Report 6503767-1 (Version None)
Quarter: 2009Q4

REPORT INFORMATION
  Report Type: 
  Country: None (occurrence: None)
  Receive Date: 20091216
  Receipt Date: 20091216
  Transmission Date: 20100525
  Serious: Yes (Life-Threatening, Hospitalization)
  Sender: FDA-Public Use
  Company Number: None

PATIENT
  Age: 62 Year
  Sex: Male
  Weight: 95.2554 kg

DRUGS (1)
  1. ENBREL [Suspect]
     Indication: PSORIASIS
     Dosage: 50MG 2X WK AUTOINJECT 50 MG 1 X WK
     Route: 017
     Dates: start: 20081101, end: 20091101

REACTIONS (2)
  - BACTERIAL INFECTION [None]
  - IMMUNE SYSTEM DISORDER [None]
